FAERS Safety Report 10932719 (Version 1)
Quarter: 2015Q1

REPORT INFORMATION
  Report Type: Spontaneous
  Country: US (occurrence: None)
  Receive Date: 20150318
  Receipt Date: 20150318
  Transmission Date: 20150721
  Serious: No
  Sender: FDA-Public Use
  Company Number: 1210513-2015-00113

PATIENT
  Sex: Female

DRUGS (1)
  1. DR SHEFFIELD MUSCLE RUB CREAM [Suspect]
     Active Substance: MENTHOL\METHYL SALICYLATE
     Indication: ANALGESIC THERAPY
     Route: 061

REACTIONS (2)
  - Wrong drug administered [None]
  - Thermal burn [None]

NARRATIVE: CASE EVENT DATE: 20100301
